FAERS Safety Report 23210716 (Version 2)
Quarter: 2023Q4

REPORT INFORMATION
  Report Type: Spontaneous
  Country: BE (occurrence: BE)
  Receive Date: 20231121
  Receipt Date: 20231128
  Transmission Date: 20240110
  Serious: Yes (Hospitalization, Other)
  Sender: FDA-Public Use
  Company Number: BE-Accord-388785

PATIENT
  Age: 77 Year
  Sex: Male
  Weight: 54.5 kg

DRUGS (4)
  1. BEVACIZUMAB [Suspect]
     Active Substance: BEVACIZUMAB
     Indication: Colorectal cancer metastatic
     Dosage: 270 MG, CYCLIC (EVERY 2 WEEKS)
     Route: 042
  2. LEUCOVORIN CALCIUM [Suspect]
     Active Substance: LEUCOVORIN CALCIUM
     Indication: Colorectal cancer metastatic
     Dosage: 665.83 MG, CYCLIC (EVERY 2 WEEKS)
     Route: 042
  3. FLUOROURACIL [Suspect]
     Active Substance: FLUOROURACIL
     Indication: Colorectal cancer metastatic
     Dosage: 532.66 MG, CYCLIC (EVERY 2 WEEKS)
     Route: 040
  4. FLUOROURACIL [Suspect]
     Active Substance: FLUOROURACIL
     Dosage: 3994.96 MG, CYCLIC (EVERY 2 WEEKS)
     Route: 042

REACTIONS (3)
  - Acute kidney injury [Recovered/Resolved]
  - Enterocolitis [Recovered/Resolved]
  - Hypokalaemia [Unknown]

NARRATIVE: CASE EVENT DATE: 20230821
